FAERS Safety Report 21812105 (Version 1)
Quarter: 2023Q1

REPORT INFORMATION
  Report Type: Spontaneous
  Country: US (occurrence: US)
  Receive Date: 20230103
  Receipt Date: 20230103
  Transmission Date: 20230417
  Serious: No
  Sender: FDA-Public Use
  Company Number: US-ELI_LILLY_AND_COMPANY-US202212012560

PATIENT
  Sex: Female

DRUGS (1)
  1. TALTZ [Suspect]
     Active Substance: IXEKIZUMAB
     Indication: Psoriatic arthropathy
     Dosage: 80 MG, UNKNOWN
     Route: 058
     Dates: start: 20220624, end: 20221017

REACTIONS (4)
  - Glossodynia [Recovering/Resolving]
  - Food intolerance [Recovering/Resolving]
  - Swollen tongue [Recovering/Resolving]
  - Oral candidiasis [Recovering/Resolving]
